FAERS Safety Report 7703534-7 (Version None)
Quarter: 2011Q3

REPORT INFORMATION
  Report Type: 
  Country: None (occurrence: None)
  Receive Date: 20110823
  Receipt Date: 20110817
  Transmission Date: 20111222
  Serious: Yes (Death)
  Sender: FDA-Public Use
  Company Number: IE-AMGEN-IRLSP2011042067

PATIENT
  Age: 67 Year
  Sex: Female

DRUGS (4)
  1. NEULASTA [Suspect]
     Indication: CHEMOTHERAPY
     Dosage: 6 MG, QMO
     Route: 058
  2. DEXAMETHASONE [Concomitant]
     Dosage: 4 MG, PER CHEMO REGIM
  3. ANTINEOPLASTIC AGENTS [Concomitant]
  4. ZOFRAN [Concomitant]
     Dosage: UNK UNK, PER CHEMO REGIM

REACTIONS (1)
  - DEATH [None]
